FAERS Safety Report 8543070-1 (Version None)
Quarter: 2012Q2

REPORT INFORMATION
  Report Type: 
  Country: None (occurrence: None)
  Receive Date: 20120412
  Receipt Date: 20090506
  Transmission Date: 20120825
  Serious: Yes (Other)
  Sender: FDA-Public Use
  Company Number: PHEH2007US09151

PATIENT
  Age: 45 Year
  Sex: Female

DRUGS (9)
  1. ZOMETA [Suspect]
     Dosage: INTRAVENOUS
     Route: 042
  2. DECADRON [Concomitant]
  3. AREDIA [Suspect]
     Dosage: 90 MG, INTRAVENOUS
     Route: 042
     Dates: start: 20010101
  4. TAXOL [Concomitant]
  5. ELAVIL [Concomitant]
  6. PEPCID [Concomitant]
  7. RADIATION THERAPY (NO INGREDIENTS/SUBSTANCES) [Concomitant]
  8. TAXOTERE [Concomitant]
  9. BENADRYL ^ACHE^ (AMMONIUM CHLORIDE, DIPHENHYDRAMINE HYDROCHLORIDE, MEN [Concomitant]

REACTIONS (8)
  - OEDEMA MUCOSAL [None]
  - PAIN IN JAW [None]
  - OSTEONECROSIS [None]
  - TOOTH EXTRACTION [None]
  - ABSCESS DRAINAGE [None]
  - INFUSION SITE HAEMORRHAGE [None]
  - IMPAIRED HEALING [None]
  - FULL BLOOD COUNT ABNORMAL [None]
